FAERS Safety Report 12183268 (Version 1)
Quarter: 2016Q1

REPORT INFORMATION
  Report Type: Spontaneous
  Country: US (occurrence: US)
  Receive Date: 20160316
  Receipt Date: 20160316
  Transmission Date: 20160526
  Serious: Yes (Death)
  Sender: FDA-Public Use
  Company Number: US-PFIZER INC-2016151359

PATIENT
  Age: 75 Year
  Sex: Male
  Weight: 72.57 kg

DRUGS (1)
  1. SUTENT [Suspect]
     Active Substance: SUNITINIB MALATE
     Indication: NEUROENDOCRINE TUMOUR
     Dosage: UNK
     Dates: start: 20151223

REACTIONS (1)
  - Death [Fatal]

NARRATIVE: CASE EVENT DATE: 20160306
